FAERS Safety Report 7450432-2 (Version None)
Quarter: 2011Q2

REPORT INFORMATION
  Report Type: 
  Country: None (occurrence: None)
  Receive Date: 20110422
  Receipt Date: 20110408
  Transmission Date: 20111010
  Serious: Yes (Hospitalization)
  Sender: FDA-Public Use
  Company Number: 2011001713

PATIENT
  Age: 67 Year
  Sex: Male

DRUGS (8)
  1. INSULIN GLARGINE (INSULIN GLARGINE) [Concomitant]
  2. OXYCODONE HCL [Concomitant]
  3. PREGABALIN [Concomitant]
  4. INSULIN (INSULIN) [Concomitant]
  5. ERLOTINIB HYDROCHLORIDE [Suspect]
     Indication: NON-SMALL CELL LUNG CANCER
     Dosage: (150 MG, DAILY, ORAL
     Route: 048
     Dates: start: 20110305, end: 20110331
  6. DOCETAXEL [Suspect]
     Indication: NON-SMALL CELL LUNG CANCER
     Dosage: (75 MG, 1 X PER 1 WEEK), INTRAVENOUS
     Route: 042
     Dates: start: 20110304
  7. METFORMIN HCL [Concomitant]
  8. DORZOLAMIDE HYDROCHLORIDE (DORZOLAMIDE HYDROCHLORIDE) [Concomitant]

REACTIONS (1)
  - FEBRILE NEUTROPENIA [None]
